FAERS Safety Report 7701459-4 (Version None)
Quarter: 2011Q3

REPORT INFORMATION
  Report Type: 
  Country: None (occurrence: None)
  Receive Date: 20110817
  Receipt Date: 20110804
  Transmission Date: 20111222
  Serious: Yes (Other)
  Sender: FDA-Public Use
  Company Number: TPA2011A04645

PATIENT
  Age: 60 Year
  Sex: Male
  Weight: 86.1834 kg

DRUGS (3)
  1. ZOCOR [Suspect]
     Indication: BLOOD CHOLESTEROL INCREASED
     Dosage: 45 MG, 1 IN 1 D
     Dates: start: 19990101
  2. ACTOS [Suspect]
     Dosage: 30 MG, 1 IN 1 D ; 45 MG, 1 IN 1 D
     Dates: start: 20080101
  3. ACTOS [Suspect]
     Dosage: 30 MG, 1 IN 1 D ; 45 MG, 1 IN 1 D
     Dates: end: 20110401

REACTIONS (1)
  - BLADDER CANCER [None]
